FAERS Safety Report 9263470 (Version 1)
Quarter: 2013Q2

REPORT INFORMATION
  Report Type: Spontaneous
  Country: US (occurrence: US)
  Receive Date: 20130430
  Receipt Date: 20130430
  Transmission Date: 20140414
  Serious: No
  Sender: FDA-Public Use
  Company Number: US-ABBOTT-12P-163-0938951-00

PATIENT
  Age: 59 Year
  Sex: Female
  Weight: 61.29 kg

DRUGS (5)
  1. CREON [Suspect]
     Indication: NEOPLASM MALIGNANT
  2. CREON [Suspect]
     Indication: PANCREATICODUODENECTOMY
  3. INSULIN [Concomitant]
     Indication: DIABETES MELLITUS
  4. NATOLOL [Concomitant]
     Indication: HYPERTENSION
  5. QUINAPRIL [Concomitant]
     Indication: HYPERTENSION

REACTIONS (4)
  - Abdominal distension [Recovered/Resolved]
  - Diarrhoea [Recovered/Resolved]
  - Abdominal pain [Recovered/Resolved]
  - Drug ineffective [Unknown]
